FAERS Safety Report 6043633-1 (Version None)
Quarter: 2009Q1

REPORT INFORMATION
  Report Type: 
  Country: None (occurrence: None)
  Receive Date: 20090120
  Receipt Date: 20080211
  Transmission Date: 20090719
  Serious: No
  Sender: FDA-Public Use
  Company Number: US-ABBOTT-08P-163-0438027-00

PATIENT
  Sex: Male
  Weight: 72.64 kg

DRUGS (2)
  1. PROSOM 1MG [Suspect]
     Indication: SLEEP DISORDER
     Route: 048
     Dates: start: 19930101, end: 20071201
  2. ZOLPIDEM TARTRATE [Concomitant]
     Indication: INSOMNIA
     Route: 048
     Dates: start: 20071201, end: 20080212

REACTIONS (3)
  - DEPRESSED LEVEL OF CONSCIOUSNESS [None]
  - DYSARTHRIA [None]
  - VISION BLURRED [None]
